FAERS Safety Report 8839345 (Version 2)
Quarter: 2013Q1

REPORT INFORMATION
  Report Type: Spontaneous
  Country: US (occurrence: US)
  Receive Date: 20121015
  Receipt Date: 20130208
  Transmission Date: 20140127
  Serious: Yes (Other)
  Sender: FDA-Public Use
  Company Number: US-JNJFOC-20121005422

PATIENT
  Age: 64 Year
  Sex: Female
  Weight: 50.8 kg

DRUGS (7)
  1. NUCYNTA [Suspect]
     Indication: PROCEDURAL PAIN
     Dosage: ONCE
     Route: 048
     Dates: start: 20121005, end: 20121005
  2. OXYCONTIN [Suspect]
     Indication: PROCEDURAL PAIN
     Route: 065
     Dates: start: 20121005
  3. NORCO [Concomitant]
     Indication: KNEE ARTHROPLASTY
     Dosage: AS NEEDED
     Route: 065
  4. NORCO [Concomitant]
     Indication: KNEE ARTHROPLASTY
     Dosage: AS NEEDED
     Route: 065
     Dates: start: 201210
  5. NORCO [Concomitant]
     Indication: PROCEDURAL PAIN
     Dosage: AS NEEDED
     Route: 065
     Dates: start: 201210
  6. NORCO [Concomitant]
     Indication: PROCEDURAL PAIN
     Dosage: AS NEEDED
     Route: 065
  7. UNKNOWN MEDICATION [Concomitant]
     Route: 065

REACTIONS (4)
  - Convulsion [Recovered/Resolved]
  - Loss of consciousness [Recovered/Resolved]
  - Tremor [Recovered/Resolved]
  - Vomiting [Recovered/Resolved]
